FAERS Safety Report 18266767 (Version 1)
Quarter: 2020Q3

REPORT INFORMATION
  Report Type: Spontaneous
  Country: DE (occurrence: DE)
  Receive Date: 20200915
  Receipt Date: 20200915
  Transmission Date: 20201103
  Serious: Yes (Other)
  Sender: FDA-Public Use
  Company Number: DE-HORIZON-RAV-0157-2020

PATIENT
  Age: 9 Year
  Sex: Female
  Weight: 35 kg

DRUGS (4)
  1. NA?BENZOAT [Concomitant]
     Dosage: 2GX4
  2. L?ARGININE [Suspect]
     Active Substance: ARGININE
     Indication: PRODUCT USED FOR UNKNOWN INDICATION
     Dosage: 913MG, 2X3
  3. RAVICTI [Suspect]
     Active Substance: GLYCEROL PHENYLBUTYRATE
     Indication: ORNITHINE TRANSCARBAMOYLASE DEFICIENCY
     Dosage: DAILY DOSE OF 4X2.5 ML (8.4 ML/M2)
     Dates: start: 201908
  4. L?CITRULLINE [Concomitant]
     Active Substance: CITRULLINE
     Dosage: 500MG, 2X4

REACTIONS (1)
  - Metabolic acidosis [Recovering/Resolving]

NARRATIVE: CASE EVENT DATE: 20191029
